FAERS Safety Report 10055273 (Version 2)
Quarter: 2014Q2

REPORT INFORMATION
  Report Type: Spontaneous
  Country: US (occurrence: US)
  Receive Date: 20140403
  Receipt Date: 20140403
  Transmission Date: 20141212
  Serious: Yes (Other)
  Sender: FDA-Public Use
  Company Number: US-BEH-2013039747

PATIENT
  Sex: Female

DRUGS (1)
  1. ZEMAIRA [Suspect]
     Dosage: STOPPED THERAPY IN NOV-2013

REACTIONS (6)
  - Lower respiratory tract infection [Unknown]
  - Oxygen saturation decreased [Unknown]
  - Dyspnoea [Unknown]
  - Oxygen saturation decreased [Unknown]
  - Malaise [Unknown]
  - Nasopharyngitis [Unknown]
